FAERS Safety Report 7116148-7 (Version None)
Quarter: 2010Q4

REPORT INFORMATION
  Report Type: 
  Country: None (occurrence: None)
  Receive Date: 20101122
  Receipt Date: 20101109
  Transmission Date: 20110411
  Serious: Yes (Other)
  Sender: FDA-Public Use
  Company Number: PHHY2010CA76634

PATIENT

DRUGS (1)
  1. ALISKIREN ALI+ [Suspect]
     Dosage: 300 MG/DAILY

REACTIONS (2)
  - HYPERTENSION [None]
  - MICROALBUMINURIA [None]
